FAERS Safety Report 10467822 (Version 1)
Quarter: 2014Q3

REPORT INFORMATION
  Report Type: Spontaneous
  Country: TW (occurrence: TW)
  Receive Date: 20140922
  Receipt Date: 20140922
  Transmission Date: 20150326
  Serious: Yes (Hospitalization)
  Sender: FDA-Public Use
  Company Number: TW-MYLANLABS-2014M1004870

PATIENT

DRUGS (1)
  1. VERAPAMIL [Suspect]
     Active Substance: VERAPAMIL HYDROCHLORIDE
     Dosage: DF=SUSTAINED-RELEASE TABLETS OF VERAPAMIL 240MG
     Route: 048

REACTIONS (5)
  - Overdose [Recovered/Resolved]
  - Periportal oedema [Recovered/Resolved]
  - Pulseless electrical activity [None]
  - Cardiac arrest [Recovered/Resolved]
  - Suicide attempt [Recovered/Resolved]
